FAERS Safety Report 17343410 (Version 1)
Quarter: 2020Q1

REPORT INFORMATION
  Report Type: Spontaneous
  Country: CA (occurrence: CA)
  Receive Date: 20200129
  Receipt Date: 20200129
  Transmission Date: 20200409
  Serious: Yes (Other)
  Sender: FDA-Public Use
  Company Number: CA-ALSI-202000037

PATIENT
  Age: 34 Year
  Sex: Female

DRUGS (5)
  1. ROCURONIUM BROMIDE. [Suspect]
     Active Substance: ROCURONIUM BROMIDE
  2. OXYGEN. [Suspect]
     Active Substance: OXYGEN
     Indication: PRODUCT USED FOR UNKNOWN INDICATION
  3. LORAZEPAM. [Suspect]
     Active Substance: LORAZEPAM
     Route: 048
  4. RINGERS SOLUTION [Suspect]
     Active Substance: CALCIUM CHLORIDE\POTASSIUM CHLORIDE\SODIUM CHLORIDE
  5. SUGAMMADEX [Suspect]
     Active Substance: SUGAMMADEX

REACTIONS (10)
  - Hypoaesthesia oral [Recovered/Resolved]
  - Hypotonia [Recovered/Resolved]
  - Paraesthesia oral [Recovered/Resolved]
  - Paralysis [Recovered/Resolved]
  - Respiratory distress [Recovered/Resolved]
  - Dyspnoea [Recovered/Resolved]
  - Tachypnoea [Recovered/Resolved]
  - Maternal exposure during pregnancy [Recovered/Resolved]
  - Neuromuscular blockade [Recovered/Resolved]
  - Dysphonia [Recovered/Resolved]
